FAERS Safety Report 19688124 (Version 1)
Quarter: 2021Q3

REPORT INFORMATION
  Report Type: Spontaneous
  Country: US (occurrence: US)
  Receive Date: 20210811
  Receipt Date: 20210811
  Transmission Date: 20211014
  Serious: No
  Sender: FDA-Public Use
  Company Number: US-GALDERMA-US2021013960

PATIENT

DRUGS (2)
  1. DIFFERIN GEL [Suspect]
     Active Substance: ADAPALENE
     Indication: ACNE
     Dosage: 1 DOSAGE FORM, QD, EVERY NIGHT
     Route: 061
     Dates: start: 2021
  2. BENZOYL PEROXIDE. [Concomitant]
     Active Substance: BENZOYL PEROXIDE
     Indication: ACNE

REACTIONS (6)
  - Pain of skin [Recovered/Resolved]
  - Dilated pores [Recovering/Resolving]
  - Chapped lips [Not Recovered/Not Resolved]
  - Skin burning sensation [Recovered/Resolved]
  - Dry skin [Not Recovered/Not Resolved]
  - Skin irritation [Recovered/Resolved]

NARRATIVE: CASE EVENT DATE: 2021
